FAERS Safety Report 4897997-2 (Version None)
Quarter: 2006Q1

REPORT INFORMATION
  Report Type: 
  Country: None (occurrence: None)
  Receive Date: 20060106
  Receipt Date: 20051004
  Transmission Date: 20060701
  Serious: No
  Sender: FDA-Public Use
  Company Number: 200512115BWH

PATIENT
  Age: 59 Year
  Sex: Male

DRUGS (2)
  1. LEVITRA [Suspect]
     Indication: ERECTILE DYSFUNCTION
     Dosage: 20 MG, TOTAL DAILY, ORAL
     Route: 048
  2. WALGREENS MVI [Concomitant]

REACTIONS (2)
  - ERECTILE DYSFUNCTION [None]
  - OCULAR HYPERAEMIA [None]
